FAERS Safety Report 15256655 (Version 2)
Quarter: 2018Q4

REPORT INFORMATION
  Report Type: Spontaneous
  Country: US (occurrence: US)
  Receive Date: 20180808
  Receipt Date: 20181001
  Transmission Date: 20190204
  Serious: No
  Sender: FDA-Public Use
  Company Number: US-BAYER-2018-145489

PATIENT
  Age: 29 Year
  Sex: Male

DRUGS (1)
  1. KOGENATE FS [Suspect]
     Active Substance: ANTIHEMOPHILIC FACTOR, HUMAN RECOMBINANT
     Indication: VON WILLEBRAND^S DISEASE
     Dosage: 2400RCOF AS NEEEDED
     Route: 042

REACTIONS (3)
  - Product use in unapproved indication [None]
  - Epistaxis [None]
  - Off label use [None]
